FAERS Safety Report 9711124 (Version 1)
Quarter: 2013Q4

REPORT INFORMATION
  Report Type: Spontaneous
  Country: US (occurrence: US)
  Receive Date: 20131126
  Receipt Date: 20131126
  Transmission Date: 20140711
  Serious: Yes (Other)
  Sender: FDA-Public Use
  Company Number: US-BRISTOL-MYERS SQUIBB COMPANY-19149947

PATIENT
  Age: 53 Year
  Sex: Male

DRUGS (16)
  1. BYETTA [Suspect]
     Indication: TYPE 2 DIABETES MELLITUS
     Route: 058
     Dates: start: 20130617, end: 20130717
  2. BUSPAR [Concomitant]
     Dosage: TABS
     Route: 048
  3. BENAZEPRIL HCL + HCTZ [Concomitant]
     Dosage: 1DF-20/25MG
     Route: 048
  4. METFORMIN HCL TABS 500MG [Concomitant]
     Route: 048
  5. PRAVASTATIN SODIUM [Concomitant]
     Route: 048
  6. NEURONTIN [Concomitant]
     Route: 048
  7. ANDROGEL [Concomitant]
     Route: 061
  8. CYMBALTA [Concomitant]
     Route: 048
  9. AMBIEN [Concomitant]
     Route: 048
  10. FLEXERIL [Concomitant]
     Dosage: FREQUENCY-EVERY EIGHT HOURS AS NEEDED
  11. FLUTICASONE [Concomitant]
     Dosage: 1DF= 2 SPRAYS
     Route: 055
  12. HYDROCODONE + ACETAMINOPHEN [Concomitant]
     Dosage: 1DF=7.5/325MG
     Route: 048
  13. LEVEMIR [Concomitant]
     Dosage: 1DF=30UNITS
     Route: 058
  14. NOVOLOG [Concomitant]
     Route: 058
  15. INSULIN 70/30 [Concomitant]
     Dosage: 1DF=70/30
     Route: 058
  16. METFORMIN [Concomitant]
     Route: 048

REACTIONS (2)
  - Renal failure acute [Recovering/Resolving]
  - Weight decreased [Unknown]
